FAERS Safety Report 25358923 (Version 3)
Quarter: 2025Q2

REPORT INFORMATION
  Report Type: Spontaneous
  Country: RU (occurrence: RU)
  Receive Date: 20250526
  Receipt Date: 20250626
  Transmission Date: 20250717
  Serious: Yes (Death, Other)
  Sender: ROCHE
  Company Number: RU-ROCHE-10000290038

PATIENT
  Sex: Male

DRUGS (1)
  1. MOSUNETUZUMAB [Suspect]
     Active Substance: MOSUNETUZUMAB
     Indication: Product used for unknown indication
     Route: 065

REACTIONS (3)
  - Cytokine release syndrome [Unknown]
  - Skin infection [Unknown]
  - Death [Fatal]
